FAERS Safety Report 10616567 (Version 1)
Quarter: 2014Q4

REPORT INFORMATION
  Report Type: Spontaneous
  Country: US (occurrence: None)
  Receive Date: 20141126
  Receipt Date: 20141126
  Transmission Date: 20150529
  Serious: No
  Sender: FDA-Public Use
  Company Number: None

PATIENT
  Age: 58 Year
  Sex: Female

DRUGS (2)
  1. GABAPENTIN. [Suspect]
     Active Substance: GABAPENTIN
     Indication: VASCULAR OPERATION
     Dosage: 1 CAP AM AND 2 IN PM,   TAKEN BY MOUTH
     Route: 048
     Dates: start: 20141120, end: 20141123
  2. GABAPENTIN. [Suspect]
     Active Substance: GABAPENTIN
     Indication: POSTOPERATIVE CARE
     Dosage: 1 CAP AM AND 2 IN PM,   TAKEN BY MOUTH
     Route: 048
     Dates: start: 20141120, end: 20141123

REACTIONS (6)
  - Swelling face [None]
  - Rash macular [None]
  - Erythema [None]
  - Throat tightness [None]
  - Local swelling [None]
  - Pruritus [None]

NARRATIVE: CASE EVENT DATE: 20141120
